FAERS Safety Report 7711599 (Version 5)
Quarter: 2014Q1

REPORT INFORMATION
  Report Type: Spontaneous
  Country: US (occurrence: US)
  Receive Date: 20101215
  Receipt Date: 20140127
  Transmission Date: 20141002
  Serious: Yes (Hospitalization, Other)
  Sender: FDA-Public Use
  Company Number: US-BAYER-201038082NA

PATIENT
  Age: 31 Year
  Sex: Female
  Weight: 74.83 kg

DRUGS (20)
  1. PERCOCET [Concomitant]
     Dosage: UNK
     Dates: end: 20090131
  2. PEPCID [Concomitant]
     Dosage: UNK
     Dates: end: 20091030
  3. Q PUMP [Concomitant]
     Dosage: UNK
     Dates: end: 20090201
  4. YAZ [Suspect]
     Indication: CONTRACEPTION
     Dosage: 1 U, QD
     Dates: start: 200710, end: 200810
  5. YAZ [Suspect]
     Indication: PREMENSTRUAL SYNDROME
  6. YASMIN [Suspect]
     Indication: CONTRACEPTION
     Dosage: 1 U, QD
     Dates: start: 200710, end: 200810
  7. YASMIN [Suspect]
     Indication: PREMENSTRUAL SYNDROME
  8. OCELLA [Suspect]
  9. COUMADIN [Concomitant]
     Indication: DEEP VEIN THROMBOSIS
     Dosage: 5 MG, UNK
     Dates: start: 200810, end: 20090123
  10. COUMADIN [Concomitant]
     Indication: DEEP VEIN THROMBOSIS
     Dosage: UNK
     Dates: start: 20090129
  11. COUMADIN [Concomitant]
     Indication: DEEP VEIN THROMBOSIS
     Dosage: UNK
     Dates: start: 200809
  12. CYTOMEL [Concomitant]
     Indication: HYPOTHYROIDISM
     Dosage: UNK
     Dates: start: 200910, end: 201005
  13. LEVOXYL [Concomitant]
     Indication: HYPOTHYROIDISM
     Dosage: UNK
     Dates: start: 200904
  14. AMIODARONE [Concomitant]
     Indication: HEART RATE ABNORMAL
     Dosage: UNK
     Dates: start: 20090129, end: 20090131
  15. THYROID PREPARATIONS [Concomitant]
     Dosage: UNK
  16. AMOXICILLIN [Concomitant]
     Dosage: UNK
  17. DARVOCET [Concomitant]
     Dosage: UNK
  18. TYLENOL [PARACETAMOL] [Concomitant]
     Dosage: UNK
  19. EXCEDRIN [CAFFEINE,PARACETAMOL] [Concomitant]
     Dosage: UNK
  20. METOPROLOL [Concomitant]
     Dosage: UNK
     Dates: end: 20090131

REACTIONS (15)
  - Deep vein thrombosis [None]
  - Local swelling [None]
  - Pain [None]
  - Burning sensation [None]
  - Dizziness [None]
  - Dyspnoea [None]
  - Transient ischaemic attack [None]
  - Visual acuity reduced [None]
  - Dysarthria [None]
  - Syncope [None]
  - Thoracotomy [None]
  - Hemianopia [None]
  - VIIth nerve paralysis [None]
  - Aphasia [None]
  - Partial seizures [None]
